FAERS Safety Report 16762852 (Version 2)
Quarter: 2019Q4

REPORT INFORMATION
  Report Type: Spontaneous
  Country: RO (occurrence: RO)
  Receive Date: 20190901
  Receipt Date: 20191001
  Transmission Date: 20200122
  Serious: Yes (Hospitalization, Other)
  Sender: FDA-Public Use
  Company Number: RO-009507513-1908ROM010248

PATIENT
  Age: 16 Year
  Sex: Female
  Weight: 65 kg

DRUGS (5)
  1. FLUTICASONE PROPIONATE. [Suspect]
     Active Substance: FLUTICASONE PROPIONATE
     Dosage: 500 MICROGRAM, 2X PER DAY, 1 PUFF X 2 / DAY
  2. XOLAIR [Suspect]
     Active Substance: OMALIZUMAB
     Dosage: 600 MILLIGRAM, PER MONTH
  3. THERAPY UNSPECIFIED [Suspect]
     Active Substance: UNSPECIFIED INGREDIENT
     Dosage: UNK
  4. XOLAIR [Suspect]
     Active Substance: OMALIZUMAB
     Indication: ASTHMA
     Dosage: 300 MG, EVERY 2 WEEKS
     Dates: start: 201809
  5. MONTELUKAST SODIUM. [Suspect]
     Active Substance: MONTELUKAST SODIUM
     Dosage: 10 MG, PER DAY

REACTIONS (7)
  - Drug ineffective [Recovered/Resolved]
  - Lymphopenia [Recovered/Resolved]
  - No adverse event [Unknown]
  - Pulmonary tuberculosis [Recovered/Resolved]
  - Streptococcal infection [Recovered/Resolved]
  - Obstructive airways disorder [Recovered/Resolved]
  - Hypochromic anaemia [Recovered/Resolved]
